FAERS Safety Report 6673435-4 (Version None)
Quarter: 2010Q2

REPORT INFORMATION
  Report Type: 
  Country: None (occurrence: None)
  Receive Date: 20100408
  Receipt Date: 20100330
  Transmission Date: 20101027
  Serious: Yes (Hospitalization, Other)
  Sender: FDA-Public Use
  Company Number: NO-PFIZER INC-2010035463

PATIENT
  Age: 27 Year
  Sex: Male

DRUGS (2)
  1. SALAZOPYRIN [Suspect]
     Indication: ARTHRITIS REACTIVE
     Dosage: 500 MG, ALTERNATE DAY
     Route: 048
     Dates: start: 20100113, end: 20100303
  2. VOLTAREN [Concomitant]
     Indication: ARTHRITIS REACTIVE
     Dosage: 50 MG, 3X/DAY
     Route: 048
     Dates: start: 20091101

REACTIONS (4)
  - ABDOMINAL PAIN UPPER [None]
  - AGRANULOCYTOSIS [None]
  - FEBRILE NEUTROPENIA [None]
  - NAUSEA [None]
